FAERS Safety Report 24907924 (Version 1)
Quarter: 2025Q1

REPORT INFORMATION
  Report Type: Report from Study
  Country: US (occurrence: US)
  Receive Date: 20250131
  Receipt Date: 20250131
  Transmission Date: 20250409
  Serious: No
  Sender: HRA PHARMA
  Company Number: US-ORG100014127-2024000172

PATIENT
  Age: 17 Year
  Sex: Female

DRUGS (5)
  1. METOPIRONE [Suspect]
     Active Substance: METYRAPONE
     Indication: Pituitary-dependent Cushing^s syndrome
     Dosage: 2 CAPSULES THREE TIMES DAILY
     Dates: start: 20240601
  2. METOPIRONE [Suspect]
     Active Substance: METYRAPONE
     Indication: Pituitary-dependent Cushing^s syndrome
     Dosage: 4 CAPSULES THREE TIMES DAILY
  3. ketoconazole tablet 200mg [Concomitant]
     Indication: Product used for unknown indication
  4. synthroid 75mcg tablet [Concomitant]
     Indication: Product used for unknown indication
  5. VITAMIN D CAP 400UNT [Concomitant]
     Indication: Product used for unknown indication

REACTIONS (1)
  - Off label use [Not Recovered/Not Resolved]
